FAERS Safety Report 7580011-8 (Version None)
Quarter: 2011Q2

REPORT INFORMATION
  Report Type: 
  Country: None (occurrence: None)
  Receive Date: 20110629
  Receipt Date: 20110627
  Transmission Date: 20111010
  Serious: Yes (Other)
  Sender: FDA-Public Use
  Company Number: BE-BRISTOL-MYERS SQUIBB COMPANY-15856172

PATIENT

DRUGS (1)
  1. ORENCIA [Suspect]
     Dosage: 1DF:1000MG/INFUSION

REACTIONS (1)
  - EJECTION FRACTION DECREASED [None]
